FAERS Safety Report 11753906 (Version 1)
Quarter: 2015Q4

REPORT INFORMATION
  Report Type: Spontaneous
  Country: US (occurrence: None)
  Receive Date: 20151118
  Receipt Date: 20151118
  Transmission Date: 20160304
  Serious: Yes (Other)
  Sender: FDA-Public Use
  Company Number: None

PATIENT
  Sex: Female

DRUGS (3)
  1. JOHNSONS BABY BODY WASH UNSPECIFIED [Suspect]
     Active Substance: COSMETICS
     Route: 061
  2. JOHNSONS BABY SHAMPOO UNSPECIFIED [Suspect]
     Active Substance: COSMETICS
     Route: 061
  3. JOHNSONS BABY LOTION [Suspect]
     Active Substance: COSMETICS
     Route: 061

REACTIONS (1)
  - Acute lymphocytic leukaemia [None]

NARRATIVE: CASE EVENT DATE: 201502
